FAERS Safety Report 19488797 (Version 2)
Quarter: 2021Q3

REPORT INFORMATION
  Report Type: Report from Study
  Country: US (occurrence: US)
  Receive Date: 20210702
  Receipt Date: 20210716
  Transmission Date: 20211014
  Serious: Yes (Hospitalization)
  Sender: FDA-Public Use
  Company Number: US-PFIZER INC-2021749560

PATIENT
  Age: 68 Year
  Sex: Male
  Weight: 91.9 kg

DRUGS (21)
  1. FLUTICASONE PROPIONATE. [Concomitant]
     Active Substance: FLUTICASONE PROPIONATE
     Dosage: FLUTICASONE PROPIONATE 50 MCG/ACT NASAL SPRAY; 1 SPRAY, BOTH NOSTRILS, DAILY
     Route: 055
  2. OXYCODONE [Concomitant]
     Active Substance: OXYCODONE
     Dosage: 5 MG, 2 TIMES DAILY PRN
     Route: 048
  3. INOTUZUMAB OZOGAMICIN [Suspect]
     Active Substance: INOTUZUMAB OZOGAMICIN
     Indication: ACUTE LYMPHOCYTIC LEUKAEMIA RECURRENT
     Dosage: 0.6  MG/M2, CYCLIC, DAYS 8 AND 15
     Route: 042
     Dates: start: 20210617, end: 20210624
  4. CYCLOPHOSPHAMIDE. [Suspect]
     Active Substance: CYCLOPHOSPHAMIDE
     Indication: ACUTE LYMPHOCYTIC LEUKAEMIA RECURRENT
     Dosage: 750 MG/M2, CYCLIC, DAY 5 Q28 DAYS
     Route: 042
     Dates: start: 20210614, end: 20210614
  5. ETOPOSIDE. [Suspect]
     Active Substance: ETOPOSIDE
     Indication: ACUTE LYMPHOCYTIC LEUKAEMIA RECURRENT
     Dosage: 50 MG/M2/DAY, CYCLIC, CIV DAYS 1?4 Q28 DAYS
     Route: 042
     Dates: start: 20210610, end: 20210613
  6. LEVOTHYROXINE. [Concomitant]
     Active Substance: LEVOTHYROXINE
     Dosage: 100 MCG, DAILY EMPTY STOMACH
     Route: 048
  7. PRAVACHOL [Concomitant]
     Active Substance: PRAVASTATIN SODIUM
     Dosage: 40 MG
     Route: 048
  8. VINCRISTINE SULFATE. [Suspect]
     Active Substance: VINCRISTINE SULFATE
     Indication: ACUTE LYMPHOCYTIC LEUKAEMIA RECURRENT
     Dosage: 0.4 MG/M2/DAY, CYCLIC,CIV DAYS 1?4 Q28 DAYS
     Route: 042
     Dates: start: 20210610, end: 20210613
  9. SODIUM CHLORIDE. [Concomitant]
     Active Substance: SODIUM CHLORIDE
     Dosage: SODIUM CHLORIDE 0.9 % FLUSH; 10 ML, LINE CARE, AS NEEDED
  10. METOPROLOL TARTRATE. [Concomitant]
     Active Substance: METOPROLOL TARTRATE
     Dosage: 12.5 MG, EVERY MORNING
     Route: 048
  11. PANTOPRAZOLE [Concomitant]
     Active Substance: PANTOPRAZOLE
     Dosage: 40 MG, 2 TIMES DAILY BEFORE MEALS
     Route: 048
  12. METHOTREXATE. [Concomitant]
     Active Substance: METHOTREXATE
     Dosage: 1 DF, SINGLE
     Route: 037
     Dates: start: 20210616
  13. LEVOFLOXACIN. [Concomitant]
     Active Substance: LEVOFLOXACIN
     Indication: ANTIBIOTIC PROPHYLAXIS
     Dosage: 750 MG, DAILY
     Route: 048
  14. FERROUS GLUCONATE [Concomitant]
     Active Substance: FERROUS GLUCONATE
     Dosage: FERROUS GLUCONATE 324 (37.5 FE) MG TABLET; 324 MG, EVERY OTHER DAY
     Route: 048
  15. DOXORUBICIN HCL [Suspect]
     Active Substance: DOXORUBICIN HYDROCHLORIDE
     Indication: ACUTE LYMPHOCYTIC LEUKAEMIA RECURRENT
     Dosage: 10 MG/M2/DAY, CYCLIC, CIV DAYS 1?4 Q28 DAYS
     Route: 042
     Dates: start: 20210610, end: 20210613
  16. PREDNISONE. [Suspect]
     Active Substance: PREDNISONE
     Indication: ACUTE LYMPHOCYTIC LEUKAEMIA RECURRENT
     Dosage: 60 MG/M2, BID, DAYS 1?5 Q28 DAYS
     Route: 048
     Dates: start: 20210610, end: 20210613
  17. ONDANSETRON [Concomitant]
     Active Substance: ONDANSETRON
     Dosage: 8 MG, EVERY 8 HOURS PRN
     Route: 048
  18. PROCHLORPERAZINE. [Concomitant]
     Active Substance: PROCHLORPERAZINE
     Dosage: 10 MG, EVERY 6 HOURS PRN
     Route: 048
  19. URSODIOL. [Concomitant]
     Active Substance: URSODIOL
     Indication: LIVER INJURY
     Dosage: 500 MG, 2 TIMES DAILY
     Route: 048
  20. NITROGLYCERIN. [Concomitant]
     Active Substance: NITROGLYCERIN
     Dosage: 0.4 MG, MAX 3 DOSES PER 15 MIN
     Route: 060
  21. TRELEGY ELLIPTA [Concomitant]
     Active Substance: FLUTICASONE FUROATE\UMECLIDINIUM BROMIDE\VILANTEROL TRIFENATATE
     Dosage: 1 PUFF, INHALATION, DAILY, RINSE MOUTH WITH WATER AFTER USE
     Route: 055

REACTIONS (1)
  - Febrile neutropenia [Recovering/Resolving]

NARRATIVE: CASE EVENT DATE: 20210619
